FAERS Safety Report 18009055 (Version 1)
Quarter: 2020Q3

REPORT INFORMATION
  Report Type: Spontaneous
  Country: US (occurrence: US)
  Receive Date: 20200710
  Receipt Date: 20200710
  Transmission Date: 20201103
  Serious: No
  Sender: FDA-Public Use
  Company Number: US-SAOL THERAPEUTICS-2020SAO00086

PATIENT
  Age: 22 Year
  Sex: Male

DRUGS (2)
  1. LIORESAL [Suspect]
     Active Substance: BACLOFEN
     Indication: BRAIN INJURY
     Dosage: 1624 ?G, \DAY; FLEX DOSING
     Route: 037
     Dates: end: 20200319
  2. LIORESAL [Suspect]
     Active Substance: BACLOFEN
     Dosage: RESTARTED AT 50% OF BASELINE DOSING
     Route: 037
     Dates: start: 20200319

REACTIONS (4)
  - Muscle rigidity [Not Recovered/Not Resolved]
  - Pyrexia [Unknown]
  - Product dose omission issue [Recovered/Resolved]
  - Treatment noncompliance [Unknown]

NARRATIVE: CASE EVENT DATE: 202003
